APPROVED DRUG PRODUCT: JELMYTO
Active Ingredient: MITOMYCIN
Strength: 40MG/VIAL
Dosage Form/Route: POWDER;PYELOCALYCEAL
Application: N211728 | Product #001
Applicant: UROGEN PHARMA LTD
Approved: Apr 15, 2020 | RLD: Yes | RS: Yes | Type: RX

PATENTS:
Patent 12268745 | Expires: Jan 20, 2031
Patent 9950069 | Expires: Jan 20, 2031
Patent 9040074 | Expires: Jan 20, 2031

EXCLUSIVITY:
Code: ODE-289 | Date: Apr 15, 2027